FAERS Safety Report 20946689 (Version 1)
Quarter: 2022Q2

REPORT INFORMATION
  Report Type: Report from Study
  Country: US (occurrence: US)
  Receive Date: 20220610
  Receipt Date: 20220610
  Transmission Date: 20220721
  Serious: Yes (Death)
  Sender: FDA-Public Use
  Company Number: TEVA-US-27May2022-21454

PATIENT
  Sex: Male

DRUGS (4)
  1. BENDEKA [Suspect]
     Active Substance: BENDAMUSTINE HYDROCHLORIDE
     Indication: Plasma cell leukaemia
     Dosage: 180 MG, (CYCLE 1)
     Route: 042
     Dates: start: 20210809
  2. BENDEKA [Suspect]
     Active Substance: BENDAMUSTINE HYDROCHLORIDE
     Dosage: 180 MG, (CYCLE 2)
     Route: 042
     Dates: start: 20210908
  3. BENDEKA [Suspect]
     Active Substance: BENDAMUSTINE HYDROCHLORIDE
     Dosage: 180 MG, (CYCLE 3)
     Route: 042
     Dates: start: 20211006
  4. BENDEKA [Suspect]
     Active Substance: BENDAMUSTINE HYDROCHLORIDE
     Dosage: 180 MG, (CYCLE 4)
     Route: 042
     Dates: start: 20211103

REACTIONS (1)
  - Death [Fatal]
